FAERS Safety Report 5208850-9 (Version None)
Quarter: 2007Q1

REPORT INFORMATION
  Report Type: 
  Country: None (occurrence: None)
  Receive Date: 20070116
  Receipt Date: 20070110
  Transmission Date: 20070707
  Serious: Yes (Hospitalization)
  Sender: FDA-Public Use
  Company Number: FR-BRISTOL-MYERS SQUIBB COMPANY-13639976

PATIENT
  Age: 59 Year
  Sex: Female
  Weight: 59 kg

DRUGS (8)
  1. BCNU PWDR FOR INJ 100 MG [Suspect]
     Route: 042
  2. ALKERAN [Suspect]
     Route: 042
  3. ARACYTINE [Suspect]
     Route: 042
  4. ETOPOSIDE TEVA [Suspect]
     Route: 042
  5. PAROXETINE HCL [Concomitant]
  6. BACTRIM [Concomitant]
  7. FOLIC ACID [Concomitant]
  8. ZOLPIDEM TARTRATE [Concomitant]

REACTIONS (2)
  - PNEUMONIA [None]
  - STOMATITIS [None]
